FAERS Safety Report 15362224 (Version 6)
Quarter: 2018Q4

REPORT INFORMATION
  Report Type: Report from Study
  Country: FR (occurrence: FR)
  Receive Date: 20180907
  Receipt Date: 20181029
  Transmission Date: 20190204
  Serious: Yes (Hospitalization)
  Sender: FDA-Public Use
  Company Number: FR-PFIZER INC-2018358600

PATIENT
  Age: 76 Year
  Sex: Female
  Weight: 61 kg

DRUGS (20)
  1. AXITINIB [Suspect]
     Active Substance: AXITINIB
     Dosage: 4 MG, 2X/DAY
     Route: 048
     Dates: start: 20180907, end: 20181017
  2. ACETAMINOPHEN. [Concomitant]
     Active Substance: ACETAMINOPHEN
     Dosage: 1 DF, UNK
     Dates: start: 201712
  3. SMECTA [DIOSMECTITE] [Concomitant]
     Dosage: 1 DF, UNK
     Route: 048
     Dates: start: 20180809
  4. AMLODIPINE [Concomitant]
     Active Substance: AMLODIPINE BESYLATE
     Dosage: 10 MG, UNK
     Dates: start: 201711
  5. COAPROVEL [Concomitant]
     Active Substance: HYDROCHLOROTHIAZIDE\IRBESARTAN
     Indication: HYPERTENSION
     Dosage: 150 MG, UNK
     Dates: start: 20180210, end: 20180828
  6. XYLOCAINE [LIDOCAINE] [Concomitant]
     Dosage: 1 DF, UNK
     Dates: start: 20180222
  7. SULFARLEM [Concomitant]
     Active Substance: ANETHOLTRITHION
     Dosage: 1 DF, UNK
     Dates: start: 201712
  8. AXITINIB [Suspect]
     Active Substance: AXITINIB
     Indication: RENAL CELL CARCINOMA
     Dosage: 5 MG, 2X/DAY (FLUCTUATED DOSES)
     Route: 048
     Dates: start: 20180112, end: 20180808
  9. PEMBROLIZUMAB. [Suspect]
     Active Substance: PEMBROLIZUMAB
     Dosage: 200 MG, EVERY 3 WEEKS
     Route: 042
     Dates: start: 20180907, end: 20180926
  10. ACETAMINOPHEN AND CODEINE [Concomitant]
     Active Substance: ACETAMINOPHEN\CODEINE PHOSPHATE
     Dosage: 1 DF, UNK
     Route: 048
     Dates: start: 20180222
  11. DOLIPRANE CODEINE [Concomitant]
     Dosage: 1 DF, UNK
     Dates: start: 20180118
  12. JANUVIA [Concomitant]
     Active Substance: SITAGLIPTIN PHOSPHATE
     Indication: DIABETES MELLITUS
     Dosage: 1 DF, UNK
     Dates: start: 20180326, end: 20180830
  13. PEMBROLIZUMAB. [Suspect]
     Active Substance: PEMBROLIZUMAB
     Dosage: 200 MG, EVERY 3 WEEKS
     Route: 042
     Dates: start: 20180809, end: 20180809
  14. PIRIBEDIL [Concomitant]
     Active Substance: PIRIBEDIL
     Dosage: 1 DF, UNK
     Dates: start: 201712
  15. LOPERAMIDE [Concomitant]
     Active Substance: LOPERAMIDE
     Dosage: 1 DF, UNK
     Dates: start: 20180809
  16. PANTOPRAZOLE [Concomitant]
     Active Substance: PANTOPRAZOLE
     Dosage: 1 DF, UNK
     Dates: start: 20180426
  17. GAVISCON [Concomitant]
     Active Substance: ALUMINUM HYDROXIDE\MAGNESIUM CARBONATE
     Dosage: 1 DF, UNK
     Route: 048
     Dates: start: 20180426
  18. AXITINIB [Suspect]
     Active Substance: AXITINIB
     Dosage: 4 MG, 2X/DAY
     Route: 048
     Dates: start: 20180809, end: 20180829
  19. PEMBROLIZUMAB. [Suspect]
     Active Substance: PEMBROLIZUMAB
     Indication: RENAL CELL CARCINOMA
     Dosage: 200 MG, EVERY 3 WEEKS (VOLUME OF INFUSION 112 ML)
     Route: 042
     Dates: start: 20180112, end: 20180719
  20. LEVOTHYROX [Concomitant]
     Active Substance: LEVOTHYROXINE
     Dosage: 125 UG, UNK
     Dates: start: 201712

REACTIONS (1)
  - Acute kidney injury [Recovered/Resolved with Sequelae]

NARRATIVE: CASE EVENT DATE: 20180828
